FAERS Safety Report 6560389-4 (Version None)
Quarter: 2010Q1

REPORT INFORMATION
  Report Type: 
  Country: None (occurrence: None)
  Receive Date: 20100129
  Receipt Date: 20091001
  Transmission Date: 20100710
  Serious: No
  Sender: FDA-Public Use
  Company Number: US-ABBOTT-09P-163-0598963-00

PATIENT
  Sex: Female
  Weight: 53.572 kg

DRUGS (9)
  1. HUMIRA [Suspect]
     Indication: PSORIASIS
     Route: 058
     Dates: start: 20090401
  2. FLUOXETINE [Concomitant]
     Indication: DRUG USE FOR UNKNOWN INDICATION
     Route: 048
  3. GLIMEPIRIDE [Concomitant]
     Indication: DIABETES MELLITUS
     Route: 048
  4. ZEMPLAR [Concomitant]
     Indication: RENAL DISORDER
     Route: 048
  5. NORVASC [Concomitant]
     Indication: HYPERTENSION
  6. HYDRALAZINE [Concomitant]
     Indication: HYPERTENSION
  7. VICODIN [Concomitant]
     Indication: DRUG USE FOR UNKNOWN INDICATION
  8. AMBIEN [Concomitant]
     Indication: DRUG USE FOR UNKNOWN INDICATION
  9. SINEMET CR [Concomitant]
     Indication: PARKINSON'S DISEASE
     Dosage: 25/200 MILLIGRAMS

REACTIONS (1)
  - DRUG DOSE OMISSION [None]
